FAERS Safety Report 14191263 (Version 3)
Quarter: 2018Q1

REPORT INFORMATION
  Report Type: Spontaneous
  Country: US (occurrence: US)
  Receive Date: 20171115
  Receipt Date: 20180112
  Transmission Date: 20180508
  Serious: Yes (Other)
  Sender: FDA-Public Use
  Company Number: US-OTSUKA-2017_024561

PATIENT
  Age: 51 Year
  Sex: Male

DRUGS (2)
  1. ABILIFY MAINTENA [Suspect]
     Active Substance: ARIPIPRAZOLE
     Dosage: UNK
     Route: 065
     Dates: start: 20171103
  2. ABILIFY MAINTENA [Suspect]
     Active Substance: ARIPIPRAZOLE
     Indication: BIPOLAR DISORDER
     Dosage: 400 MG, ONCE
     Route: 030
     Dates: start: 20171027

REACTIONS (7)
  - Agitation [Not Recovered/Not Resolved]
  - Tongue coated [Unknown]
  - Irritability [Unknown]
  - Drug screen positive [Unknown]
  - Intentional overdose [Unknown]
  - Dyspnoea [Unknown]
  - Swollen tongue [Unknown]

NARRATIVE: CASE EVENT DATE: 20171103
